FAERS Safety Report 5218349-1 (Version None)
Quarter: 2007Q1

REPORT INFORMATION
  Report Type: 
  Country: None (occurrence: None)
  Receive Date: 20070124
  Receipt Date: 20070112
  Transmission Date: 20070707
  Serious: Yes (Other)
  Sender: FDA-Public Use
  Company Number: JP-PFIZER INC-2007004196

PATIENT
  Age: 6 Year
  Sex: Female

DRUGS (2)
  1. SOLU-MEDROL [Suspect]
     Indication: INTERSTITIAL LUNG DISEASE
     Dosage: DAILY DOSE:500MG
     Route: 042
  2. CYCLOSPORINE [Suspect]
     Route: 042

REACTIONS (2)
  - HAEMOGLOBIN DECREASED [None]
  - OCCULT BLOOD [None]
